FAERS Safety Report 5868602-3 (Version None)
Quarter: 2008Q3

REPORT INFORMATION
  Report Type: 
  Country: None (occurrence: None)
  Receive Date: 20080828
  Receipt Date: 20080821
  Transmission Date: 20090109
  Serious: Yes (Other)
  Sender: FDA-Public Use
  Company Number: JPI-P-004356

PATIENT
  Age: 53 Year
  Sex: Female
  Weight: 88.4514 kg

DRUGS (9)
  1. XYREM [Suspect]
     Indication: CHRONIC FATIGUE SYNDROME
     Dosage: ORAL; 4.5 GM (4.5 GM, 1 IN 1 D) ,ORAL; 4 GM (4 GM, 1 IN 1 D) ,ORAL
     Route: 048
     Dates: start: 20070801
  2. XYREM [Suspect]
     Indication: FIBROMYALGIA
     Dosage: ORAL; 4.5 GM (4.5 GM, 1 IN 1 D) ,ORAL; 4 GM (4 GM, 1 IN 1 D) ,ORAL
     Route: 048
     Dates: start: 20070801
  3. XYREM [Suspect]
     Indication: SLEEP DISORDER
     Dosage: ORAL; 4.5 GM (4.5 GM, 1 IN 1 D) ,ORAL; 4 GM (4 GM, 1 IN 1 D) ,ORAL
     Route: 048
     Dates: start: 20070801
  4. GABAPENTIN [Concomitant]
  5. TRAMADOL HCL [Concomitant]
  6. OXCARBAZEPINE [Concomitant]
  7. ESOMEPRAZOLE MAGNESIUM (ESOMEPRAZOLE MAGNESIUM) [Concomitant]
  8. LIDOCAINE (LIDOCAINE) (POULTICE OR PATCH) [Concomitant]
  9. CLOBETASOL (CLOBETASOL) (CREAM) [Concomitant]

REACTIONS (2)
  - SKIN CANCER [None]
  - WEIGHT DECREASED [None]
